FAERS Safety Report 12474364 (Version 1)
Quarter: 2016Q2

REPORT INFORMATION
  Report Type: Spontaneous
  Country: US (occurrence: None)
  Receive Date: 20160616
  Receipt Date: 20160616
  Transmission Date: 20160815
  Serious: No
  Sender: FDA-Public Use
  Company Number: None

PATIENT
  Age: 71 Year
  Sex: Male

DRUGS (2)
  1. IBRANCE [Suspect]
     Active Substance: PALBOCICLIB
     Indication: BREAST CANCER
     Route: 048
     Dates: start: 201604
  2. FEMARA [Concomitant]
     Active Substance: LETROZOLE

REACTIONS (3)
  - Sinusitis [None]
  - Fatigue [None]
  - Headache [None]

NARRATIVE: CASE EVENT DATE: 2016
